FAERS Safety Report 14799885 (Version 1)
Quarter: 2018Q2

REPORT INFORMATION
  Report Type: Spontaneous
  Country: US (occurrence: US)
  Receive Date: 20180416
  Receipt Date: 20180416
  Transmission Date: 20180711
  Serious: No
  Sender: FDA-Public Use
  Company Number: None

PATIENT
  Sex: Male

DRUGS (11)
  1. POLYETH GLYC [Concomitant]
     Active Substance: POLYETHYLENE GLYCOLS
  2. MYCOPHELOLATE [Suspect]
     Active Substance: MYCOPHENOLIC ACID
     Indication: ENCEPHALITIS
     Route: 048
     Dates: start: 20171221
  3. RISPERIDONE. [Concomitant]
     Active Substance: RISPERIDONE
  4. AMOXICILLIN. [Concomitant]
     Active Substance: AMOXICILLIN
  5. MYCOPHELOLATE [Suspect]
     Active Substance: MYCOPHENOLIC ACID
     Indication: ENCEPHALOMYELITIS
     Route: 048
     Dates: start: 20171221
  6. IBUPROFEN. [Concomitant]
     Active Substance: IBUPROFEN
  7. SENNA-GRX [Concomitant]
  8. BROM/PSE/DM [Concomitant]
  9. CALCIMAX [Concomitant]
     Active Substance: CALCIUM CARBONATE\CHOLECALCIFEROL
  10. PREDNISONE. [Concomitant]
     Active Substance: PREDNISONE
  11. VALPROIC ACD [Concomitant]

REACTIONS (2)
  - Disease recurrence [None]
  - Underdose [None]
